FAERS Safety Report 5426038-3 (Version None)
Quarter: 2007Q3

REPORT INFORMATION
  Report Type: 
  Country: None (occurrence: None)
  Receive Date: 20070824
  Receipt Date: 20070824
  Transmission Date: 20080115
  Serious: No
  Sender: FDA-Public Use
  Company Number: None

PATIENT
  Age: 72 Year
  Sex: Male
  Weight: 87.9978 kg

DRUGS (1)
  1. QUINAPRIL [Suspect]
     Indication: HYPERTENSION
     Dosage: 10 MG DAILY ORAL
     Route: 048
     Dates: start: 20070613

REACTIONS (2)
  - OEDEMA PERIPHERAL [None]
  - PHARMACEUTICAL PRODUCT COMPLAINT [None]
